FAERS Safety Report 5316531-6 (Version None)
Quarter: 2007Q2

REPORT INFORMATION
  Report Type: 
  Country: None (occurrence: None)
  Receive Date: 20070504
  Receipt Date: 20070502
  Transmission Date: 20071010
  Serious: Yes (Hospitalization)
  Sender: FDA-Public Use
  Company Number: FR-BRISTOL-MYERS SQUIBB COMPANY-13768957

PATIENT
  Age: 71 Year
  Sex: Female
  Weight: 62 kg

DRUGS (5)
  1. TAXOL [Suspect]
     Indication: FALLOPIAN TUBE CANCER
     Route: 042
     Dates: start: 20070308, end: 20070308
  2. CARBOPLATIN [Suspect]
     Indication: FALLOPIAN TUBE CANCER
     Route: 042
     Dates: start: 20070308, end: 20070308
  3. ZOFRAN [Suspect]
     Dates: start: 20070308
  4. POLARAMINE [Suspect]
     Dates: start: 20070308
  5. CIMETIDINE HCL [Suspect]
     Dates: start: 20070308

REACTIONS (1)
  - HAEMOLYTIC ANAEMIA [None]
